FAERS Safety Report 26086702 (Version 1)
Quarter: 2025Q4

REPORT INFORMATION
  Report Type: Report from Study
  Country: CA (occurrence: CA)
  Receive Date: 20251125
  Receipt Date: 20251125
  Transmission Date: 20260118
  Serious: Yes (Other)
  Sender: ABBVIE
  Company Number: CA-ABBVIE-6559848

PATIENT
  Age: 73 Year
  Sex: Female

DRUGS (4)
  1. SKYRIZI [Suspect]
     Active Substance: RISANKIZUMAB-RZAA
     Indication: Psoriatic arthropathy
     Route: 058
     Dates: start: 202508
  2. RINVOQ [Suspect]
     Active Substance: UPADACITINIB
     Indication: Psoriatic arthropathy
     Route: 048
     Dates: end: 202507
  3. PREDNISONE [Suspect]
     Active Substance: PREDNISONE
     Indication: Product used for unknown indication
     Route: 065
  4. ACYCLOVIR [Concomitant]
     Active Substance: ACYCLOVIR
     Indication: Product used for unknown indication
     Dates: start: 2018

REACTIONS (13)
  - Cataract [Unknown]
  - Malaise [Unknown]
  - General physical health deterioration [Unknown]
  - Intestinal dilatation [Unknown]
  - Herpes zoster [Unknown]
  - Immunodeficiency [Unknown]
  - Gastrointestinal pain [Not Recovered/Not Resolved]
  - Pancreatitis chronic [Unknown]
  - Stress [Unknown]
  - Compression fracture [Unknown]
  - Osteoporosis [Unknown]
  - Bone disorder [Unknown]
  - Asthenia [Unknown]

NARRATIVE: CASE EVENT DATE: 20250101
